FAERS Safety Report 23975277 (Version 2)
Quarter: 2024Q3

REPORT INFORMATION
  Report Type: Spontaneous
  Country: CA (occurrence: CA)
  Receive Date: 20240614
  Receipt Date: 20240810
  Transmission Date: 20241016
  Serious: Yes (Other)
  Sender: CELLTRION
  Company Number: CA-PFIZER INC-202400190146

PATIENT

DRUGS (8)
  1. INFLECTRA [Suspect]
     Active Substance: INFLIXIMAB-DYYB
     Indication: Crohn^s disease
     Dosage: 400 MG, EVERY 6 WEEKS
     Route: 042
     Dates: start: 20240425
  2. AZATHIOPRINE [Concomitant]
     Active Substance: AZATHIOPRINE
     Dosage: 50 MG
  3. COLESEVELAM [Concomitant]
     Active Substance: COLESEVELAM
     Dosage: 625 MG
  4. IRON [Concomitant]
     Active Substance: IRON
     Dosage: 300 MG
  5. COLESEVELAM HYDROCHLORIDE [Concomitant]
     Active Substance: COLESEVELAM HYDROCHLORIDE
     Dosage: UNK
  6. MULTI VITAMIN [ARGININE HYDROCHLORIDE;ASCORBIC ACID;CALCIUM;CALCIUM PA [Concomitant]
     Dosage: 1 DF
     Route: 065
  7. VITAMIN B12 [Concomitant]
     Active Substance: CYANOCOBALAMIN
     Dosage: 1 DF, EVERY 3 WEEKS
     Route: 065
  8. CHOLECALCIFEROL [Concomitant]
     Active Substance: CHOLECALCIFEROL
     Dosage: 1 DF, 1X/DAY
     Route: 065

REACTIONS (1)
  - Tooth extraction [Unknown]

NARRATIVE: CASE EVENT DATE: 20240601
